FAERS Safety Report 12612474 (Version 1)
Quarter: 2016Q3

REPORT INFORMATION
  Report Type: Spontaneous
  Country: US (occurrence: US)
  Receive Date: 20160801
  Receipt Date: 20160801
  Transmission Date: 20161109
  Serious: No
  Sender: FDA-Public Use
  Company Number: US-PRINSTON PHARMACEUTICAL INC.-2016PRN00077

PATIENT
  Age: 31 Year
  Sex: Male
  Weight: 65.76 kg

DRUGS (6)
  1. LOSARTAN POTASSIUM. [Suspect]
     Active Substance: LOSARTAN POTASSIUM
     Indication: HYPERTENSION
     Dosage: 25 MG, 1X/DAY
     Route: 048
     Dates: start: 2015, end: 20160426
  2. FISH OIL [Concomitant]
     Active Substance: FISH OIL
  3. ASHWAGANDHA [Concomitant]
     Active Substance: HERBALS
  4. VALSARTAN. [Suspect]
     Active Substance: VALSARTAN
     Dosage: UNK, ONCE
     Dates: start: 20160429, end: 20160429
  5. AMLODIPINE [Concomitant]
     Active Substance: AMLODIPINE BESYLATE
  6. UNSPECIFIED VITAMIN(S) [Concomitant]

REACTIONS (2)
  - Heart rate increased [Recovering/Resolving]
  - Feeling abnormal [Recovered/Resolved]

NARRATIVE: CASE EVENT DATE: 201604
